FAERS Safety Report 8996304 (Version 2)
Quarter: 2013Q4

REPORT INFORMATION
  Report Type: Report from Study
  Country: US (occurrence: US)
  Receive Date: 20130103
  Receipt Date: 20131010
  Transmission Date: 20140711
  Serious: Yes (Hospitalization)
  Sender: FDA-Public Use
  Company Number: US-ELI_LILLY_AND_COMPANY-US201203000127

PATIENT
  Age: 89 Year
  Sex: Female

DRUGS (18)
  1. TERIPARATIDE [Suspect]
     Indication: OSTEOPOROSIS
     Dosage: 20 UG, QD
     Route: 065
     Dates: start: 201111
  2. TERIPARATIDE [Suspect]
     Dosage: 20 UG, QD
     Route: 065
  3. TERIPARATIDE [Suspect]
     Dosage: 20 UG, QD
     Route: 065
  4. TERIPARATIDE [Suspect]
     Dosage: 20 UG, QD
     Route: 065
  5. OXYGEN [Concomitant]
  6. CALCIUM [Concomitant]
  7. AMITRIPTYLINE [Concomitant]
     Dosage: UNK, QD
  8. BABY ASPIRIN [Concomitant]
     Dosage: 80 MG, QD
  9. DIOVAN [Concomitant]
     Dosage: 160 MG, QD
  10. FUROSEMIDE [Concomitant]
     Dosage: 40 MG, QD
  11. NISOLDIPINE [Concomitant]
     Dosage: UNK, QD
  12. OMEPRAZOLE [Concomitant]
     Dosage: 20 MG, QD
  13. VICODIN [Concomitant]
     Dosage: UNK, PRN
  14. VITAMIN D2 [Concomitant]
     Dosage: UNK, WEEKLY (1/W)
  15. PANTOPRAZOL [Concomitant]
  16. MECLIZINE [Concomitant]
  17. HYDROCODONE [Concomitant]
  18. PLAVIX [Concomitant]

REACTIONS (21)
  - Dizziness [Not Recovered/Not Resolved]
  - Fall [Unknown]
  - Local swelling [Unknown]
  - Decreased activity [Unknown]
  - Pain in extremity [Unknown]
  - Blood count abnormal [Unknown]
  - Tremor [Unknown]
  - Drug dose omission [Unknown]
  - Cardiac disorder [Unknown]
  - Hypoaesthesia [Unknown]
  - Burning sensation [Unknown]
  - Swelling [Unknown]
  - Pain [Unknown]
  - Musculoskeletal stiffness [Unknown]
  - Gait disturbance [Unknown]
  - Rash maculo-papular [Unknown]
  - Eye discharge [Unknown]
  - Rash macular [Unknown]
  - Rash pruritic [Unknown]
  - Muscle spasms [Not Recovered/Not Resolved]
  - Muscle spasms [Unknown]
